FAERS Safety Report 5053584-7 (Version None)
Quarter: 2006Q3

REPORT INFORMATION
  Report Type: 
  Country: None (occurrence: None)
  Receive Date: 20060718
  Receipt Date: 19980624
  Transmission Date: 20061208
  Serious: Yes (Death)
  Sender: FDA-Public Use
  Company Number: FR-AVENTIS-FR02-09124

PATIENT
  Age: 73 Year
  Sex: Female

DRUGS (5)
  1. LOVENOX [Suspect]
     Indication: THROMBOSIS PROPHYLAXIS
     Route: 058
     Dates: end: 19980511
  2. DIAMICRON [Suspect]
     Indication: DIABETES MELLITUS
     Route: 048
     Dates: end: 19980511
  3. RIFATER [Suspect]
     Indication: MYCOBACTERIA URINE TEST POSITIVE
     Route: 048
     Dates: start: 19980323, end: 19980511
  4. MYAMBUTOL [Suspect]
     Indication: MYCOBACTERIA URINE TEST POSITIVE
     Route: 048
     Dates: start: 19980323, end: 19980511
  5. COZAAR [Suspect]
     Indication: HYPERTENSION
     Route: 048
     Dates: end: 19980511

REACTIONS (4)
  - BLOOD BILIRUBIN INCREASED [None]
  - ENCEPHALOPATHY [None]
  - HAEMOLYSIS [None]
  - RENAL FAILURE ACUTE [None]
